FAERS Safety Report 5820081-8 (Version None)
Quarter: 2008Q3

REPORT INFORMATION
  Report Type: 
  Country: None (occurrence: None)
  Receive Date: 20080711
  Receipt Date: 20080630
  Transmission Date: 20090109
  Serious: Yes (Other)
  Sender: FDA-Public Use
  Company Number: AEUSA200800149

PATIENT
  Age: 36 Year
  Sex: Male
  Weight: 77.1115 kg

DRUGS (3)
  1. GAMUNEX [Suspect]
     Indication: AMYOTROPHIC LATERAL SCLEROSIS
     Dosage: 1 G/KG; QM; IV
     Route: 042
     Dates: start: 20080501, end: 20080501
  2. IBUPROFEN [Concomitant]
  3. TYLENOL (CAPLET) [Concomitant]

REACTIONS (2)
  - HEPATITIS C [None]
  - HEPATITIS POST TRANSFUSION [None]
